FAERS Safety Report 12168555 (Version 2)
Quarter: 2016Q2

REPORT INFORMATION
  Report Type: Spontaneous
  Country: US (occurrence: US)
  Receive Date: 20160310
  Receipt Date: 20160613
  Transmission Date: 20160815
  Serious: No
  Sender: FDA-Public Use
  Company Number: US-BIOCOMPATIBLES UK LTD-BTG00639

PATIENT

DRUGS (11)
  1. VARITHENA [Suspect]
     Active Substance: POLIDOCANOL
     Indication: VARICOSE VEIN
     Dosage: 3 ML, UNK
     Dates: start: 20160125
  2. ANTIBIOTICS [Concomitant]
     Active Substance: UNSPECIFIED INGREDIENT
     Indication: PRODUCT USED FOR UNKNOWN INDICATION
  3. VARITHENA [Suspect]
     Active Substance: POLIDOCANOL
     Dosage: 6 ML, UNK
     Dates: start: 20160125
  4. TYLENOL [Concomitant]
     Active Substance: ACETAMINOPHEN
     Indication: ANALGESIC THERAPY
     Dosage: 650-1000 MG PRN
     Dates: start: 20160125
  5. SALINE [Concomitant]
     Active Substance: SODIUM CHLORIDE
     Indication: LOCAL ANAESTHESIA
     Dosage: 800 UNK, UNK
     Route: 042
     Dates: start: 20160125, end: 20160125
  6. EPINEPHRINE. [Concomitant]
     Active Substance: EPINEPHRINE
     Indication: LOCAL ANAESTHESIA
     Dosage: 0.5 UNK, UNK
     Dates: start: 20160125, end: 20160125
  7. ASPIRIN. [Concomitant]
     Active Substance: ASPIRIN
     Indication: THROMBOPHLEBITIS SUPERFICIAL
     Dosage: 325 MG, QD
     Dates: end: 20160208
  8. VARITHENA [Suspect]
     Active Substance: POLIDOCANOL
     Dosage: 6 ML, UNK
     Dates: start: 20160125
  9. TYLENOL [Concomitant]
     Active Substance: ACETAMINOPHEN
     Indication: PYREXIA
  10. LIDOCAINE. [Concomitant]
     Active Substance: LIDOCAINE
     Indication: LOCAL ANAESTHESIA
     Dosage: 50 UNK, UNK
     Dates: start: 20160125
  11. BICARBONATE NA [Concomitant]
     Dosage: 10 UNK, UNK
     Dates: start: 20160125, end: 20160125

REACTIONS (2)
  - Deep vein thrombosis [Not Recovered/Not Resolved]
  - Venous thrombosis limb [Not Recovered/Not Resolved]

NARRATIVE: CASE EVENT DATE: 20160201
